FAERS Safety Report 25838076 (Version 1)
Quarter: 2025Q3

REPORT INFORMATION
  Report Type: Spontaneous
  Country: US (occurrence: US)
  Receive Date: 20250923
  Receipt Date: 20250923
  Transmission Date: 20251021
  Serious: Yes (Other)
  Sender: SANOFI AVENTIS
  Company Number: US-SANOFI-02660864

PATIENT
  Age: 42 Year
  Sex: Male

DRUGS (2)
  1. DUPIXENT [Suspect]
     Active Substance: DUPILUMAB
     Indication: Dermatitis atopic
     Dosage: 300 MG, QOW
     Dates: start: 20250108, end: 2025
  2. RINVOQ [Concomitant]
     Active Substance: UPADACITINIB
     Indication: Dermatitis atopic

REACTIONS (2)
  - Cutaneous T-cell lymphoma [Unknown]
  - Therapeutic response decreased [Unknown]
